FAERS Safety Report 4884791-1 (Version None)
Quarter: 2005Q4

REPORT INFORMATION
  Report Type: 
  Country: None (occurrence: None)
  Receive Date: 20051201
  Receipt Date: 20050911
  Transmission Date: 20060501
  Serious: No
  Sender: FDA-Public Use
  Company Number: 2005PV001944

PATIENT
  Age: 69 Year
  Sex: Female
  Weight: 86.1834 kg

DRUGS (13)
  1. BYETTA [Suspect]
     Indication: DIABETES MELLITUS NON-INSULIN-DEPENDENT
     Dosage: 5 MCG; BID; SC
     Route: 058
     Dates: start: 20050910
  2. BETAPACE [Concomitant]
  3. PREVACID [Concomitant]
  4. LEVOXYL [Concomitant]
  5. COZAAR [Concomitant]
  6. NORVASC [Concomitant]
  7. SPRIRANOLACTONE [Concomitant]
  8. AMARYL [Concomitant]
  9. ACTOS [Concomitant]
  10. METFORMIN HCL [Concomitant]
  11. PRAVACHOL [Concomitant]
  12. VITAMIN E [Concomitant]
  13. STOOL SOFTENER [Concomitant]

REACTIONS (1)
  - PALPITATIONS [None]
